FAERS Safety Report 5327485-0 (Version None)
Quarter: 2007Q2

REPORT INFORMATION
  Report Type: 
  Country: None (occurrence: None)
  Receive Date: 20070517
  Receipt Date: 20070201
  Transmission Date: 20071010
  Serious: Yes (Other)
  Sender: FDA-Public Use
  Company Number: US-JNJFOC-20070105829

PATIENT
  Age: 15 Year
  Sex: Female

DRUGS (4)
  1. TRAMADOL HCL [Suspect]
     Indication: INTENTIONAL DRUG MISUSE
     Route: 048
  2. ALCOHOL [Suspect]
     Indication: INTENTIONAL DRUG MISUSE
     Route: 065
  3. ACETAMINOPHEN AND HYDROCODONE BITARTRATE [Suspect]
     Indication: DRUG USE FOR UNKNOWN INDICATION
     Route: 065
  4. TRAZODONE HCL [Concomitant]
     Indication: DEPRESSION
     Route: 065

REACTIONS (8)
  - AMNESIA [None]
  - COMA [None]
  - CONTUSION [None]
  - DEHYDRATION [None]
  - DEPRESSED LEVEL OF CONSCIOUSNESS [None]
  - HYPOTENSION [None]
  - LIVER FUNCTION TEST ABNORMAL [None]
  - RESPIRATORY ARREST [None]
